FAERS Safety Report 5018841-9 (Version None)
Quarter: 2006Q2

REPORT INFORMATION
  Report Type: 
  Country: None (occurrence: None)
  Receive Date: 20060530
  Receipt Date: 20060519
  Transmission Date: 20061013
  Serious: Yes (Hospitalization)
  Sender: FDA-Public Use
  Company Number: 163-20785-06020383

PATIENT
  Age: 82 Year
  Sex: Male

DRUGS (1)
  1. THALOMID [Suspect]
     Indication: MYELOPROLIFERATIVE DISORDER
     Dosage: 150-200MG, DAILY, ORAL
     Route: 048
     Dates: start: 20051214, end: 20060201

REACTIONS (22)
  - ARRHYTHMIA [None]
  - ATRIAL FIBRILLATION [None]
  - CARDIAC DISORDER [None]
  - DIZZINESS [None]
  - DYSPNOEA [None]
  - HAEMOGLOBIN DECREASED [None]
  - HYPERHIDROSIS [None]
  - HYPERSOMNIA [None]
  - HYPOTENSION [None]
  - LEUKAEMIA [None]
  - MALIGNANT TRANSFORMATION [None]
  - MUSCLE SPASMS [None]
  - MUSCULAR WEAKNESS [None]
  - OEDEMA PERIPHERAL [None]
  - ORAL MUCOSAL DISCOLOURATION [None]
  - ORAL MUCOSAL PETECHIAE [None]
  - PALLOR [None]
  - PANCYTOPENIA [None]
  - PLATELET COUNT DECREASED [None]
  - RALES [None]
  - TACHYCARDIA [None]
  - WHITE BLOOD CELL COUNT INCREASED [None]
